FAERS Safety Report 8609193 (Version 7)
Quarter: 2013Q3

REPORT INFORMATION
  Report Type: Report from Study
  Country: ZA (occurrence: ZA)
  Receive Date: 20120611
  Receipt Date: 20130724
  Transmission Date: 20140515
  Serious: Yes (Hospitalization, Other)
  Sender: FDA-Public Use
  Company Number: ZA-ROCHE-1072930

PATIENT
  Age: 53 Year
  Sex: Female
  Weight: 82 kg

DRUGS (41)
  1. ERYTHROMYCIN [Concomitant]
     Route: 048
     Dates: start: 20120530, end: 20120530
  2. POTASSIUM CHLORIDE [Concomitant]
     Dosage: 40 MMOL STAT
     Route: 050
     Dates: start: 20120529
  3. TRAMACET [Concomitant]
     Route: 048
     Dates: start: 20120529, end: 20120530
  4. PANTOCID [Concomitant]
     Route: 048
     Dates: start: 20120529
  5. VOLTAREN SUPPOSITORY [Concomitant]
     Dosage: 12HRLY P/R X 3
     Route: 065
     Dates: start: 20120529, end: 20120529
  6. DANTRON [Concomitant]
     Dosage: 4 MG 6 HRLY PRN
     Route: 050
     Dates: start: 20120527
  7. ATIVAN [Concomitant]
     Dosage: 4 HRLY PRN
     Route: 050
     Dates: start: 20120527
  8. ELTROXIN [Concomitant]
     Route: 048
     Dates: start: 20120528
  9. ANDOLEX C SPRAY [Concomitant]
     Dosage: PRN
     Route: 050
     Dates: start: 20120527
  10. LASIX [Concomitant]
     Route: 050
  11. SLOW-K [Concomitant]
     Route: 065
     Dates: start: 20120531
  12. PREDNISONE [Concomitant]
     Route: 048
     Dates: start: 20120531
  13. CALCIFEROL [Concomitant]
     Dosage: ^50000 U^
     Route: 065
  14. SIMVASTATIN [Concomitant]
     Route: 048
  15. SIMVASTATIN [Concomitant]
     Route: 048
     Dates: start: 20120531
  16. FLUOXETINE [Concomitant]
     Route: 048
  17. DORMICUM (SOUTH AFRICA) [Concomitant]
     Route: 048
     Dates: start: 20120526
  18. ECOTRIN [Concomitant]
     Route: 048
  19. TOCILIZUMAB [Suspect]
     Indication: RHEUMATOID ARTHRITIS
     Dosage: LAST DOSE PRIOR TO SAE:26/APR/2012
     Route: 042
     Dates: start: 20110304, end: 20120525
  20. PLACEBO [Suspect]
     Indication: RHEUMATOID ARTHRITIS
     Dosage: LAST DOSE PRIR TO SAE ON 18/MAY/2012
     Route: 048
     Dates: start: 20110304, end: 20120525
  21. STILPANE TABLETS [Concomitant]
     Route: 065
     Dates: start: 2010
  22. TREPILINE [Concomitant]
     Route: 048
     Dates: start: 2007
  23. FOLIC ACID [Concomitant]
     Route: 065
     Dates: start: 20110304
  24. CHOLECALCIFEROL [Concomitant]
     Route: 065
     Dates: start: 20110304
  25. PREDNISOLONE [Concomitant]
     Route: 065
     Dates: start: 20110623
  26. NUZAK [Concomitant]
     Route: 065
     Dates: start: 20110729
  27. NUZAK [Concomitant]
     Route: 048
  28. BRAZEPAM [Concomitant]
     Route: 065
     Dates: start: 20110916
  29. CELEBREX [Concomitant]
     Route: 065
     Dates: start: 2010
  30. TRAMAL [Concomitant]
     Route: 030
     Dates: start: 20120522
  31. DORMONOCT [Concomitant]
     Route: 048
     Dates: start: 20120522
  32. STOPAYNE [Concomitant]
     Dosage: 2 TABS 6-8 HRLY PM
     Route: 065
     Dates: start: 20120523
  33. PICOPREP [Concomitant]
     Route: 048
     Dates: start: 20120525
  34. CRESTOR [Concomitant]
     Route: 065
     Dates: start: 20120525
  35. CRESTOR [Concomitant]
     Route: 048
     Dates: start: 20120526, end: 20120530
  36. ASPIRIN [Concomitant]
     Route: 065
     Dates: start: 20120525
  37. ASPIRIN [Concomitant]
     Route: 048
     Dates: end: 20120527
  38. ASPIRIN [Concomitant]
     Route: 048
     Dates: start: 20120330
  39. PERFALGAN [Concomitant]
     Route: 050
     Dates: start: 20120527
  40. CEFAZOLIN [Concomitant]
     Route: 050
     Dates: start: 20120526
  41. CLEXANE [Concomitant]
     Route: 058
     Dates: start: 20120528, end: 20120531

REACTIONS (1)
  - Aortic stenosis [Recovered/Resolved]
